FAERS Safety Report 5478287-6 (Version None)
Quarter: 2007Q4

REPORT INFORMATION
  Report Type: 
  Country: None (occurrence: None)
  Receive Date: 20071005
  Receipt Date: 20070928
  Transmission Date: 20080405
  Serious: Yes (Hospitalization)
  Sender: FDA-Public Use
  Company Number: TR-ASTRAZENECA-2007AC01882

PATIENT
  Age: 76 Year
  Sex: Male

DRUGS (8)
  1. QUETIAPINE FUMARATE [Suspect]
     Indication: DEPRESSION
     Route: 048
  2. QUETIAPINE FUMARATE [Suspect]
     Indication: AGITATION
     Route: 048
  3. QUETIAPINE FUMARATE [Suspect]
     Route: 048
  4. QUETIAPINE FUMARATE [Suspect]
     Route: 048
  5. QUETIAPINE FUMARATE [Suspect]
     Route: 048
  6. QUETIAPINE FUMARATE [Suspect]
     Route: 048
  7. ESCITALOPRAM OXALATE [Suspect]
     Indication: DEPRESSION
  8. ESCITALOPRAM OXALATE [Suspect]
     Indication: AGITATION

REACTIONS (1)
  - INAPPROPRIATE ANTIDIURETIC HORMONE SECRETION [None]
